FAERS Safety Report 23733590 (Version 3)
Quarter: 2024Q3

REPORT INFORMATION
  Report Type: Spontaneous
  Country: JP (occurrence: JP)
  Receive Date: 20240411
  Receipt Date: 20240726
  Transmission Date: 20241016
  Serious: Yes (Hospitalization, Other)
  Sender: BRISTOL MYERS SQUIBB
  Company Number: JP-BRISTOL-MYERS SQUIBB COMPANY-2024-054021

PATIENT
  Age: 74 Year
  Sex: Male

DRUGS (2)
  1. YERVOY [Suspect]
     Active Substance: IPILIMUMAB
     Indication: Squamous cell carcinoma of lung
     Route: 041
     Dates: start: 202202, end: 202202
  2. OPDIVO [Suspect]
     Active Substance: NIVOLUMAB
     Indication: Squamous cell carcinoma of lung
     Dates: start: 202202, end: 202202

REACTIONS (6)
  - Immune-mediated lung disease [Unknown]
  - Decreased activity [Unknown]
  - Non-small cell lung cancer recurrent [Recovering/Resolving]
  - Pleural effusion [Unknown]
  - Radiation pneumonitis [Unknown]
  - Lymphadenopathy [Recovering/Resolving]

NARRATIVE: CASE EVENT DATE: 20220201
